FAERS Safety Report 6492952-3 (Version None)
Quarter: 2009Q4

REPORT INFORMATION
  Report Type: 
  Country: None (occurrence: None)
  Receive Date: 20091214
  Receipt Date: 20091207
  Transmission Date: 20100525
  Serious: Yes (Death, Other)
  Sender: FDA-Public Use
  Company Number: PHHY2009US54772

PATIENT
  Age: 32 Year
  Sex: Male

DRUGS (6)
  1. CARBAMAZEPINE [Suspect]
     Indication: EPILEPSY
  2. PHENYTOIN [Concomitant]
  3. LAMOTRIGINE [Concomitant]
  4. TOPIRAMATE [Concomitant]
  5. LEVETIRACETAM [Concomitant]
     Dosage: 1000 MG, UNK
  6. LEVETIRACETAM [Concomitant]
     Dosage: 2000 MG, UNK

REACTIONS (4)
  - COMPLEX PARTIAL SEIZURES [None]
  - CONVULSION [None]
  - DEATH [None]
  - MEMORY IMPAIRMENT [None]
